FAERS Safety Report 6505841-2 (Version None)
Quarter: 2009Q4

REPORT INFORMATION
  Report Type: 
  Country: None (occurrence: None)
  Receive Date: 20091218
  Receipt Date: 20091202
  Transmission Date: 20100525
  Serious: Yes (Hospitalization, Other)
  Sender: FDA-Public Use
  Company Number: SK-BAYER-SK-2007-010073

PATIENT
  Age: 39 Year
  Sex: Female

DRUGS (2)
  1. BETAFERON [Suspect]
     Indication: MULTIPLE SCLEROSIS
     Dosage: UNK, EVERY 2D
     Route: 058
     Dates: start: 20060927, end: 20061001
  2. BETAFERON [Suspect]
     Dosage: UNK, EVERY 2D
     Route: 058
     Dates: start: 20060101, end: 20061105

REACTIONS (8)
  - CUTANEOUS VASCULITIS [None]
  - DRUG ERUPTION [None]
  - LYMPHOCYTE COUNT INCREASED [None]
  - LYMPHOCYTIC INFILTRATION [None]
  - PARAPARESIS [None]
  - PURPURA [None]
  - RASH PAPULAR [None]
  - SKIN LESION [None]
